FAERS Safety Report 10681861 (Version 1)
Quarter: 2014Q4

REPORT INFORMATION
  Report Type: Spontaneous
  Country: US (occurrence: None)
  Receive Date: 20141229
  Receipt Date: 20141229
  Transmission Date: 20150529
  Serious: No
  Sender: FDA-Public Use
  Company Number: None

PATIENT
  Age: 30 Year
  Sex: Female
  Weight: 56.7 kg

DRUGS (1)
  1. NEXPLANON [Suspect]
     Active Substance: ETONOGESTREL
     Indication: CONTRACEPTION
     Dosage: ONE TIME IMPLANT, ONE TIME IMPLANT, GIVEN INTO/UNDER THE SKIN

REACTIONS (7)
  - Depression [None]
  - Menorrhagia [None]
  - Decreased appetite [None]
  - Dizziness [None]
  - Menstruation irregular [None]
  - Mood swings [None]
  - Irritability [None]

NARRATIVE: CASE EVENT DATE: 20141228
